FAERS Safety Report 8104696-2 (Version None)
Quarter: 2012Q1

REPORT INFORMATION
  Report Type: 
  Country: None (occurrence: None)
  Receive Date: 20120130
  Receipt Date: 20120116
  Transmission Date: 20120608
  Serious: Yes (Death, Other)
  Sender: FDA-Public Use
  Company Number: DSJ-2012-00782

PATIENT
  Age: 72 Year
  Sex: Female

DRUGS (4)
  1. DOCUSATE SODIUM/BISACODYL [Concomitant]
  2. BENICAR ANLO(OLMESARTAN MEDOXOMIL, AMLODIPINE BESILATE)(TABLET)(OLMESA [Suspect]
     Indication: HYPERTENSION
     Dosage: 20/5 MG (1 IN 1 D), PER ORAL
     Route: 048
     Dates: start: 20100101, end: 20120112
  3. CALCIUM/VITAMIN D (ERGOCALCIFEROL, CALCIUM) (ERGOCALCIFEROL, CALCIUM ) [Concomitant]
  4. CILOSTAZOL [Concomitant]

REACTIONS (4)
  - BONE PAIN [None]
  - DRUG ADMINISTRATION ERROR [None]
  - ANGINA PECTORIS [None]
  - PAIN IN EXTREMITY [None]
